FAERS Safety Report 25415067 (Version 1)
Quarter: 2025Q2

REPORT INFORMATION
  Report Type: Spontaneous
  Country: MA (occurrence: MA)
  Receive Date: 20250609
  Receipt Date: 20250609
  Transmission Date: 20250717
  Serious: Yes (Other)
  Sender: PRINSTON PHARMACEUTICAL
  Company Number: MA-PRINSTON PHARMACEUTICAL INC.-2025PRN00193

PATIENT
  Age: 12 Year
  Sex: Male

DRUGS (1)
  1. AMPHETAMINE SULFATE [Suspect]
     Active Substance: AMPHETAMINE SULFATE
     Route: 048

REACTIONS (6)
  - Coma [Recovering/Resolving]
  - Hypotension [Recovering/Resolving]
  - Tachycardia [Recovering/Resolving]
  - Toxicity to various agents [Unknown]
  - Generalised tonic-clonic seizure [Recovering/Resolving]
  - Peripheral coldness [Recovering/Resolving]
